FAERS Safety Report 8803064 (Version 1)
Quarter: 2012Q4

REPORT INFORMATION
  Report Type: 
  Country: JP (occurrence: JP)
  Receive Date: 20120924
  Receipt Date: 20120924
  Transmission Date: 20130627
  Serious: Yes (Other)
  Sender: FDA-Public Use
  Company Number: JP-PFIZER INC-2012232312

PATIENT
  Age: 69 Year
  Sex: Male

DRUGS (8)
  1. CISPLATIN [Suspect]
     Indication: GASTRIC CANCER
     Dosage: UNK
  2. CISPLATIN [Suspect]
     Indication: METASTASES TO LIVER
  3. CISPLATIN [Suspect]
     Indication: METASTASES TO LYMPH NODES
  4. CISPLATIN [Suspect]
     Indication: CHEMOTHERAPY
  5. GIMERACIL\OTERACIL\TEGAFUR [Suspect]
     Indication: GASTRIC CANCER
     Dosage: UNK
  6. GIMERACIL\OTERACIL\TEGAFUR [Suspect]
     Indication: METASTASES TO LIVER
  7. GIMERACIL\OTERACIL\TEGAFUR [Suspect]
     Indication: METASTASES TO LYMPH NODES
  8. GIMERACIL\OTERACIL\TEGAFUR [Suspect]
     Indication: CHEMOTHERAPY

REACTIONS (1)
  - Tumour lysis syndrome [Unknown]
